FAERS Safety Report 18833048 (Version 7)
Quarter: 2021Q4

REPORT INFORMATION
  Report Type: Spontaneous
  Country: US (occurrence: US)
  Receive Date: 20210203
  Receipt Date: 20211210
  Transmission Date: 20220303
  Serious: Yes (Hospitalization, Other)
  Sender: FDA-Public Use
  Company Number: US-GLAXOSMITHKLINE-US2021AMR019129

PATIENT
  Age: 54 Year
  Sex: Female

DRUGS (6)
  1. ZEJULA [Suspect]
     Active Substance: NIRAPARIB
     Indication: Ovarian cancer
     Dosage: 300 MG
     Dates: start: 20210118, end: 20210210
  2. ZEJULA [Suspect]
     Active Substance: NIRAPARIB
     Dosage: 200 MG, QD
     Dates: start: 20210126
  3. ZEJULA [Suspect]
     Active Substance: NIRAPARIB
     Dosage: 200 MG, QD
     Route: 048
  4. ZEJULA [Suspect]
     Active Substance: NIRAPARIB
     Dosage: 300 MG, QD
  5. ZEJULA [Suspect]
     Active Substance: NIRAPARIB
     Dosage: 200 MG, QD
     Route: 048
  6. ZEJULA [Suspect]
     Active Substance: NIRAPARIB
     Dosage: 200 MG, QD

REACTIONS (17)
  - Device dislocation [Unknown]
  - Renal disorder [Not Recovered/Not Resolved]
  - Headache [Unknown]
  - Nausea [Not Recovered/Not Resolved]
  - Insomnia [Unknown]
  - Dry mouth [Unknown]
  - Constipation [Unknown]
  - Somnolence [Unknown]
  - Illness [Not Recovered/Not Resolved]
  - Thirst [Not Recovered/Not Resolved]
  - Thinking abnormal [Unknown]
  - Abdominal discomfort [Unknown]
  - Laboratory test abnormal [Unknown]
  - Product dose omission issue [Unknown]
  - Blood pressure increased [Unknown]
  - Thirst [Unknown]
  - Fatigue [Unknown]

NARRATIVE: CASE EVENT DATE: 20210202
